FAERS Safety Report 8103901-6 (Version None)
Quarter: 2012Q1

REPORT INFORMATION
  Report Type: 
  Country: None (occurrence: None)
  Receive Date: 20120201
  Receipt Date: 20120125
  Transmission Date: 20120608
  Serious: Yes (Hospitalization)
  Sender: FDA-Public Use
  Company Number: AU-PFIZER INC-2012021996

PATIENT
  Age: 71 Year
  Sex: Male

DRUGS (2)
  1. ZYVOX [Suspect]
  2. METFORMIN HCL [Suspect]

REACTIONS (8)
  - DECREASED APPETITE [None]
  - ABDOMINAL PAIN [None]
  - NAUSEA [None]
  - MYALGIA [None]
  - URINE OUTPUT DECREASED [None]
  - RENAL IMPAIRMENT [None]
  - LACTIC ACIDOSIS [None]
  - VOMITING [None]
